FAERS Safety Report 14038531 (Version 3)
Quarter: 2017Q4

REPORT INFORMATION
  Report Type: Report from Study
  Country: NO (occurrence: NO)
  Receive Date: 20171004
  Receipt Date: 20171107
  Transmission Date: 20180321
  Serious: Yes (Hospitalization)
  Sender: FDA-Public Use
  Company Number: NO-JNJFOC-20171001349

PATIENT
  Age: 87 Year
  Sex: Female
  Weight: 57 kg

DRUGS (10)
  1. AMLODIPINE [Concomitant]
     Active Substance: AMLODIPINE BESYLATE
     Route: 048
  2. LAMICTAL [Concomitant]
     Active Substance: LAMOTRIGINE
     Route: 048
     Dates: start: 2013
  3. ACETYLSALICYLIC ACID [Suspect]
     Active Substance: ASPIRIN
     Indication: AORTIC VALVE REPLACEMENT
     Route: 048
     Dates: start: 20170908, end: 20170925
  4. RIVAROXABAN [Suspect]
     Active Substance: RIVAROXABAN
     Indication: THROMBOSIS PROPHYLAXIS
     Route: 048
     Dates: start: 20170908, end: 20170925
  5. ALBYL-E [Concomitant]
     Active Substance: ASPIRIN\MAGNESIUM OXIDE
     Route: 048
     Dates: start: 20170926
  6. ACETYLSALICYLIC ACID [Suspect]
     Active Substance: ASPIRIN
     Indication: THROMBOSIS PROPHYLAXIS
     Route: 048
     Dates: start: 20170908, end: 20170925
  7. PLAVIX [Concomitant]
     Active Substance: CLOPIDOGREL BISULFATE
     Route: 048
     Dates: start: 20170926
  8. RIVAROXABAN [Suspect]
     Active Substance: RIVAROXABAN
     Indication: AORTIC VALVE REPLACEMENT
     Route: 048
     Dates: start: 20170908, end: 20170925
  9. TRIATEC [Concomitant]
     Active Substance: RAMIPRIL
     Route: 048
  10. IRON [Concomitant]
     Active Substance: IRON
     Route: 065

REACTIONS (2)
  - Constipation [Recovered/Resolved]
  - Syncope [Recovered/Resolved]

NARRATIVE: CASE EVENT DATE: 20170916
